FAERS Safety Report 4520736-1 (Version None)
Quarter: 2004Q4

REPORT INFORMATION
  Report Type: 
  Country: None (occurrence: None)
  Receive Date: 20041203
  Receipt Date: 20041022
  Transmission Date: 20050328
  Serious: Yes (Hospitalization)
  Sender: FDA-Public Use
  Company Number: STA-AE-04-MTX-516

PATIENT
  Age: 47 Year
  Sex: Female

DRUGS (12)
  1. RHEUMATREX [Suspect]
     Indication: RHEUMATOID ARTHRITIS
     Dosage: SEE IMAGE
     Route: 048
     Dates: start: 20021217, end: 20030204
  2. RHEUMATREX [Suspect]
     Indication: RHEUMATOID ARTHRITIS
     Dosage: SEE IMAGE
     Route: 048
     Dates: start: 20030205, end: 20040113
  3. MINOCYCLINE HCL [Suspect]
     Indication: NASOPHARYNGITIS
     Dosage: 2 TABLET 1X PER 1 DAY, ORAL
     Route: 048
  4. REMICADE [Suspect]
     Indication: RHEUMATOID ARTHRITIS
     Dosage: 3 MG/KG/DAY, I NTRAVENOUS
     Route: 042
     Dates: start: 20031022, end: 20031022
  5. REMICADE [Suspect]
     Indication: RHEUMATOID ARTHRITIS
     Dosage: 3 MG/KG/DAY, I NTRAVENOUS
     Route: 042
     Dates: start: 20031104, end: 20031104
  6. REMICADE [Suspect]
     Indication: RHEUMATOID ARTHRITIS
     Dosage: 3 MG/KG/DAY, I NTRAVENOUS
     Route: 042
     Dates: start: 20031216, end: 20031216
  7. PL (CAFFEINE/PARACETAMOL/PROMETHAZINE METHYLENE DISALICYLATE/SALICYLAM [Concomitant]
  8. LOXONIN (LOXOPROFEN SODIUM) [Concomitant]
  9. PREDNISOLONE [Concomitant]
  10. SELBEX (TEPRENONE) [Concomitant]
  11. URSODIOL [Concomitant]
  12. GLYCYRON (AMINOACETIC ACID/DL-METHIONINE/GLYCYRRHIZIC ACID) [Concomitant]

REACTIONS (3)
  - HEPATIC FUNCTION ABNORMAL [None]
  - POLYMYOSITIS [None]
  - TRANSAMINASES INCREASED [None]
